FAERS Safety Report 20975383 (Version 1)
Quarter: 2022Q2

REPORT INFORMATION
  Report Type: Spontaneous
  Country: US (occurrence: US)
  Receive Date: 20220617
  Receipt Date: 20220617
  Transmission Date: 20220721
  Serious: No
  Sender: FDA-Public Use
  Company Number: US-BAYER-2022A082224

PATIENT
  Age: 71 Year
  Sex: Female

DRUGS (3)
  1. KERENDIA [Suspect]
     Active Substance: FINERENONE
  2. PIOGLITAZONE [Concomitant]
     Active Substance: PIOGLITAZONE
  3. ATORVASTATIN [Concomitant]
     Active Substance: ATORVASTATIN

REACTIONS (1)
  - Vomiting [None]

NARRATIVE: CASE EVENT DATE: 20220610
